FAERS Safety Report 15182882 (Version 2)
Quarter: 2018Q3

REPORT INFORMATION
  Report Type: Spontaneous
  Country: US (occurrence: US)
  Receive Date: 20180723
  Receipt Date: 20180904
  Transmission Date: 20181010
  Serious: No
  Sender: FDA-Public Use
  Company Number: US-SA-2018SA193050

PATIENT
  Age: 76 Year
  Sex: Female

DRUGS (1)
  1. TOUJEO [Suspect]
     Active Substance: INSULIN GLARGINE
     Indication: TYPE 2 DIABETES MELLITUS
     Dosage: 7 U, UNK
     Route: 065

REACTIONS (3)
  - Injection site haemorrhage [Unknown]
  - Blood glucose increased [Unknown]
  - Injection site pain [Unknown]
